FAERS Safety Report 6071238-5 (Version None)
Quarter: 2009Q1

REPORT INFORMATION
  Report Type: 
  Country: None (occurrence: None)
  Receive Date: 20090209
  Receipt Date: 20090130
  Transmission Date: 20090719
  Serious: Yes (Hospitalization)
  Sender: FDA-Public Use
  Company Number: US-ELI_LILLY_AND_COMPANY-US200809000300

PATIENT
  Sex: Female

DRUGS (12)
  1. FORTEO [Suspect]
     Indication: OSTEOPOROSIS
     Dosage: 20 UG, DAILY (1/D)
     Dates: start: 20070101, end: 20080101
  2. FORTEO [Suspect]
     Dosage: 20 UG, DAILY (1/D)
     Dates: start: 20080101, end: 20080201
  3. FORTEO [Suspect]
     Dosage: 20 UG, DAILY (1/D)
     Dates: start: 20080101, end: 20080829
  4. FORTEO [Suspect]
     Dosage: 20 UG, DAILY (1/D)
     Dates: start: 20080101
  5. SPIRIVA [Concomitant]
     Dosage: 18 UG, DAILY (1/D)
  6. ADVAIR DISKUS 100/50 [Concomitant]
     Dosage: 250/50
  7. SINGULAIR [Concomitant]
     Dosage: 10,  DAILY (1/D)
  8. ASPIRIN [Concomitant]
     Dosage: 80,  DAILY (1/D)
  9. CHLORPHENIRAMINE MALEATE [Concomitant]
     Dosage: ONE, AS NEEDED, USUALLY DAILY
  10. OXYCODONE HCL [Concomitant]
     Dosage: 5/325 EVERY FOUR TO SIX HOURS, USUALLY ONE TABLET DAILY
  11. PROAIR HFA [Concomitant]
     Dosage: TWO PUFFS, AS NEEDED
  12. VYTORIN [Concomitant]
     Dosage: ONE DAILY (1/D)

REACTIONS (6)
  - BLOOD CALCIUM INCREASED [None]
  - BRONCHITIS [None]
  - CHRONIC OBSTRUCTIVE PULMONARY DISEASE [None]
  - FEELING ABNORMAL [None]
  - HYPERLIPIDAEMIA [None]
  - MEDICATION ERROR [None]
